FAERS Safety Report 10236964 (Version 1)
Quarter: 2014Q2

REPORT INFORMATION
  Report Type: Spontaneous
  Country: US (occurrence: US)
  Receive Date: 20140613
  Receipt Date: 20140613
  Transmission Date: 20141212
  Serious: Yes (Hospitalization)
  Sender: FDA-Public Use
  Company Number: US-PFIZER INC-2014163298

PATIENT
  Age: 32 Year
  Sex: Female
  Weight: 65.76 kg

DRUGS (1)
  1. LYRICA [Suspect]
     Dosage: 300 MG, 1X/DAY
     Route: 048

REACTIONS (2)
  - Influenza [Unknown]
  - Vomiting [Unknown]
